FAERS Safety Report 5551943-7 (Version None)
Quarter: 2007Q4

REPORT INFORMATION
  Report Type: 
  Country: None (occurrence: None)
  Receive Date: 20071129
  Receipt Date: 20070612
  Transmission Date: 20080405
  Serious: Yes (Hospitalization)
  Sender: FDA-Public Use
  Company Number: US200703002044

PATIENT
  Age: 47 Year
  Sex: Male
  Weight: 95.2 kg

DRUGS (8)
  1. ZYPREXA [Suspect]
     Dosage: 25 MG, 10 MG
     Dates: start: 20040421, end: 20041221
  2. ZYPREXA [Suspect]
     Dosage: 25 MG, 10 MG
     Dates: start: 20051027
  3. ABILIFY [Concomitant]
  4. LAMICTAL [Concomitant]
  5. PROZAC [Concomitant]
  6. TOFRANIL-PM (IMIPRAMINE EMBONATE) [Concomitant]
  7. REMERON [Concomitant]
  8. PAXIL [Concomitant]

REACTIONS (11)
  - BLOOD CHOLESTEROL INCREASED [None]
  - BLOOD TRIGLYCERIDES INCREASED [None]
  - COGNITIVE DISORDER [None]
  - HYPERGLYCAEMIA [None]
  - HYPERTENSION [None]
  - LOSS OF CONSCIOUSNESS [None]
  - METABOLIC DISORDER [None]
  - ORTHOSTATIC HYPOTENSION [None]
  - OVERDOSE [None]
  - SEDATION [None]
  - TYPE 2 DIABETES MELLITUS [None]
